FAERS Safety Report 10862137 (Version 1)
Quarter: 2015Q1

REPORT INFORMATION
  Report Type: Spontaneous
  Country: US (occurrence: US)
  Receive Date: 20150224
  Receipt Date: 20150224
  Transmission Date: 20150721
  Serious: No
  Sender: FDA-Public Use
  Company Number: US-009507513-1502USA010013

PATIENT
  Sex: Male

DRUGS (1)
  1. TINACTIN [Suspect]
     Active Substance: TOLNAFTATE
     Indication: RASH
     Dosage: UNK, UNKNOWN
     Route: 061
     Dates: start: 201409

REACTIONS (4)
  - Rash pruritic [Unknown]
  - Rash erythematous [Unknown]
  - Drug ineffective [Unknown]
  - Burning sensation [Unknown]
